FAERS Safety Report 16582301 (Version 1)
Quarter: 2019Q3

REPORT INFORMATION
  Report Type: Report from Study
  Country: GB (occurrence: GB)
  Receive Date: 20190717
  Receipt Date: 20190717
  Transmission Date: 20191004
  Serious: Yes (Other)
  Sender: FDA-Public Use
  Company Number: GB-TEVA-2019-GB-1077826

PATIENT
  Sex: Female

DRUGS (4)
  1. LIGNOCAINE [Concomitant]
     Active Substance: LIDOCAINE HYDROCHLORIDE
     Route: 061
  2. FLAMAZINE [Concomitant]
     Active Substance: SILVER SULFADIAZINE
     Route: 061
  3. PREDNISOLONE. [Suspect]
     Active Substance: PREDNISOLONE
     Indication: BRONCHIECTASIS
     Dosage: REPEATED PROLONGED COURSES
     Route: 048
  4. IMIQUIMOD. [Suspect]
     Active Substance: IMIQUIMOD
     Indication: VULVAR DYSPLASIA
     Route: 061

REACTIONS (2)
  - Off label use [Unknown]
  - Vulvar dysplasia [Unknown]
